FAERS Safety Report 8618940-6 (Version None)
Quarter: 2012Q3

REPORT INFORMATION
  Report Type: 
  Country: None (occurrence: None)
  Receive Date: 20120815
  Receipt Date: 20120815
  Transmission Date: 20120928
  Serious: Yes (Hospitalization)
  Sender: FDA-Public Use
  Company Number: None

PATIENT
  Sex: Female
  Weight: 60.9 kg

DRUGS (10)
  1. TAXOL [Suspect]
     Dosage: 295 MG
  2. PROMETHAZINE [Concomitant]
  3. CARBOPLATIN [Suspect]
  4. AMBIEN [Concomitant]
  5. PROLOSEC [Concomitant]
  6. JOINT HEALTH COMPLEX [Concomitant]
  7. MULTI-VITAMIN [Concomitant]
  8. LISINOPRIL [Concomitant]
  9. NITROFURANTOIN [Concomitant]
  10. OXYCODONE/ACETAMINOPHEN [Concomitant]

REACTIONS (8)
  - DYSPNOEA [None]
  - NAUSEA [None]
  - RENAL FAILURE ACUTE [None]
  - DEHYDRATION [None]
  - BLOOD SODIUM DECREASED [None]
  - MYALGIA [None]
  - HYPOPHAGIA [None]
  - TACHYCARDIA [None]
